FAERS Safety Report 6150377-4 (Version None)
Quarter: 2009Q2

REPORT INFORMATION
  Report Type: 
  Country: None (occurrence: None)
  Receive Date: 20090409
  Receipt Date: 20090401
  Transmission Date: 20091009
  Serious: Yes (Other)
  Sender: FDA-Public Use
  Company Number: US-AVENTIS-200912725US

PATIENT
  Sex: Female

DRUGS (7)
  1. APIDRA [Suspect]
     Route: 058
  2. LANTUS [Suspect]
     Dosage: DOSE: 62 UNITS IN AM AND 50 UNITS IN QHS
     Route: 058
  3. OPTICLIK GREY [Suspect]
  4. ZOCOR [Concomitant]
     Dosage: DOSE: 1 TAB
  5. CELEBREX [Concomitant]
     Indication: ARTHRITIS
     Dosage: DOSE: 1 TAB
  6. EFFEXOR [Concomitant]
     Indication: DEPRESSION
     Dosage: DOSE: 1 TAB
  7. WELCHOL [Concomitant]
     Dosage: DOSE: 3 TABS

REACTIONS (4)
  - HYPOGLYCAEMIA [None]
  - MEDICATION ERROR [None]
  - VISION BLURRED [None]
  - WEIGHT DECREASED [None]
